FAERS Safety Report 9331726 (Version 1)
Quarter: 2013Q2

REPORT INFORMATION
  Report Type: Report from Study
  Country: US (occurrence: US)
  Receive Date: 20130605
  Receipt Date: 20130605
  Transmission Date: 20140414
  Serious: Yes (Other)
  Sender: FDA-Public Use
  Company Number: US-BRISTOL-MYERS SQUIBB COMPANY-18971069

PATIENT
  Age: 51 Year
  Sex: Male
  Weight: 97 kg

DRUGS (1)
  1. IPILIMUMAB [Suspect]
     Indication: MALIGNANT MELANOMA
     Dosage: 1000MG?RECENT DOSE 18DEC12
     Route: 042
     Dates: start: 20121127

REACTIONS (1)
  - Enterocolitis infectious [Unknown]
